FAERS Safety Report 4336320-9 (Version None)
Quarter: 2004Q2

REPORT INFORMATION
  Report Type: 
  Country: None (occurrence: None)
  Receive Date: 20040407
  Receipt Date: 20040326
  Transmission Date: 20050107
  Serious: Yes (Hospitalization)
  Sender: FDA-Public Use
  Company Number: US-JNJFOC-20040306375

PATIENT
  Age: 62 Year
  Sex: Female
  Weight: 65.7716 kg

DRUGS (3)
  1. RETEVASE [Suspect]
     Indication: PERIPHERAL EMBOLISM
     Dosage: SEE IMAGE
     Route: 040
     Dates: start: 20040310, end: 20040311
  2. RETEVASE [Suspect]
     Indication: PERIPHERAL EMBOLISM
     Dosage: SEE IMAGE
     Route: 040
     Dates: start: 20040310
  3. HEPARIN [Concomitant]

REACTIONS (3)
  - HAEMORRHAGE INTRACRANIAL [None]
  - HEADACHE [None]
  - LEG AMPUTATION [None]
